FAERS Safety Report 4711050-X (Version None)
Quarter: 2005Q3

REPORT INFORMATION
  Report Type: 
  Country: None (occurrence: None)
  Receive Date: 20050708
  Receipt Date: 20050708
  Transmission Date: 20060218
  Serious: Yes (Other)
  Sender: FDA-Public Use
  Company Number: None

PATIENT
  Age: 51 Year
  Sex: Female
  Weight: 65.7716 kg

DRUGS (2)
  1. OPTIMUM LOBOB [Suspect]
     Dosage: DAILY OPHTHALMIC
     Route: 047
     Dates: start: 20050702, end: 20050702
  2. OPTIMUM LOBOB [Suspect]
     Dosage: DAILY OPHTHALMIC
     Route: 047
     Dates: start: 20050706, end: 20050706

REACTIONS (5)
  - CONTACT LENS COMPLICATION [None]
  - DRY EYE [None]
  - EYE IRRITATION [None]
  - EYE PAIN [None]
  - VISION BLURRED [None]
